FAERS Safety Report 11875593 (Version 1)
Quarter: 2015Q4

REPORT INFORMATION
  Report Type: Spontaneous
  Country: JP (occurrence: JP)
  Receive Date: 20151229
  Receipt Date: 20151229
  Transmission Date: 20160305
  Serious: Yes (Other)
  Sender: FDA-Public Use
  Company Number: PHJP2015JP023256

PATIENT
  Age: 37 Year
  Sex: Male

DRUGS (1)
  1. PURSENNIDE TAB [Suspect]
     Active Substance: SENNOSIDES A AND B
     Indication: PRODUCT USED FOR UNKNOWN INDICATION
     Dosage: 12 MG, DAILY
     Route: 048
     Dates: start: 201311, end: 201312

REACTIONS (1)
  - Drug reaction with eosinophilia and systemic symptoms [Unknown]
